FAERS Safety Report 24202382 (Version 1)
Quarter: 2024Q3

REPORT INFORMATION
  Report Type: Report from Study
  Country: CA (occurrence: CA)
  Receive Date: 20240813
  Receipt Date: 20240813
  Transmission Date: 20241016
  Serious: Yes (Hospitalization, Congenital Anomaly, Other)
  Sender: JOHNSON AND JOHNSON
  Company Number: CA-JNJFOC-20240809396

PATIENT

DRUGS (9)
  1. REMICADE [Suspect]
     Active Substance: INFLIXIMAB
     Indication: Crohn^s disease
     Route: 064
  2. REMICADE [Suspect]
     Active Substance: INFLIXIMAB
     Indication: Colitis ulcerative
  3. STELARA [Suspect]
     Active Substance: USTEKINUMAB
     Indication: Crohn^s disease
     Route: 064
  4. STELARA [Suspect]
     Active Substance: USTEKINUMAB
     Indication: Colitis ulcerative
  5. VEDOLIZUMAB [Suspect]
     Active Substance: VEDOLIZUMAB
     Indication: Crohn^s disease
     Route: 064
  6. VEDOLIZUMAB [Suspect]
     Active Substance: VEDOLIZUMAB
     Indication: Colitis ulcerative
  7. ADALIMUMAB [Suspect]
     Active Substance: ADALIMUMAB
     Indication: Crohn^s disease
     Dosage: BIWEEKLY
     Route: 064
  8. ADALIMUMAB [Suspect]
     Active Substance: ADALIMUMAB
     Indication: Colitis ulcerative
  9. BUDESONIDE [Concomitant]
     Active Substance: BUDESONIDE

REACTIONS (19)
  - Atrioventricular septal defect [Unknown]
  - Atrial septal defect [Unknown]
  - Aorta hypoplasia [Unknown]
  - Foetal heart rate decreased [Unknown]
  - Respiratory distress [Unknown]
  - Jaundice [Unknown]
  - Neutropenia [Unknown]
  - Viral diarrhoea [Unknown]
  - Bronchiolitis [Unknown]
  - Transient tachypnoea of the newborn [Unknown]
  - Positive airway pressure therapy [Unknown]
  - Colitis [Unknown]
  - Hypogammaglobulinaemia [Unknown]
  - Premature baby [Unknown]
  - Foetal exposure during pregnancy [Unknown]
  - Eosinophilia [Unknown]
  - Thrombocytosis [Unknown]
  - Low birth weight baby [Unknown]
  - Exposure via breast milk [Unknown]
